FAERS Safety Report 22252241 (Version 1)
Quarter: 2023Q2

REPORT INFORMATION
  Report Type: Report from Study
  Country: US (occurrence: US)
  Receive Date: 20230426
  Receipt Date: 20230426
  Transmission Date: 20230721
  Serious: No
  Sender: FDA-Public Use
  Company Number: US-002147023-NVSC2023US094249

PATIENT
  Sex: Female

DRUGS (1)
  1. PROMACTA [Suspect]
     Active Substance: ELTROMBOPAG OLAMINE
     Indication: Product used for unknown indication
     Dosage: 50 MG
     Route: 065

REACTIONS (4)
  - Nasal congestion [Unknown]
  - Influenza like illness [Unknown]
  - Pyrexia [Unknown]
  - Oropharyngeal pain [Unknown]
